FAERS Safety Report 7027306-4 (Version None)
Quarter: 2010Q4

REPORT INFORMATION
  Report Type: 
  Country: None (occurrence: None)
  Receive Date: 20101004
  Receipt Date: 20100930
  Transmission Date: 20110411
  Serious: Yes (Hospitalization, Other)
  Sender: FDA-Public Use
  Company Number: US-PFIZER INC-2005118106

PATIENT
  Sex: Female
  Weight: 87 kg

DRUGS (5)
  1. NARDIL [Suspect]
     Indication: PANIC ATTACK
     Dosage: 15 MG, 2X/DAY
     Route: 048
     Dates: start: 19850101
  2. NARDIL [Interacting]
     Indication: AGORAPHOBIA
     Dosage: 15 MG, 1X/DAY
     Route: 048
  3. NARDIL [Interacting]
     Indication: ANXIETY
     Dosage: 3 MG, UNK
     Route: 048
     Dates: start: 19860101
  4. SYNTHROID [Interacting]
     Indication: THYROID DISORDER
     Dosage: 150 UG, UNK
  5. CENTRUM [Concomitant]

REACTIONS (11)
  - ABNORMAL SENSATION IN EYE [None]
  - BACK PAIN [None]
  - BLOOD GLUCOSE DECREASED [None]
  - BLOOD PRESSURE INCREASED [None]
  - BONE DISORDER [None]
  - CHOLELITHIASIS [None]
  - DRUG INEFFECTIVE [None]
  - DRUG INTERACTION [None]
  - MALAISE [None]
  - MUSCLE DISORDER [None]
  - THYROID DISORDER [None]
